FAERS Safety Report 16624790 (Version 2)
Quarter: 2019Q3

REPORT INFORMATION
  Report Type: Spontaneous
  Country: US (occurrence: US)
  Receive Date: 20190724
  Receipt Date: 20190808
  Transmission Date: 20191004
  Serious: Yes (Life-Threatening, Hospitalization, Other)
  Sender: FDA-Public Use
  Company Number: US-PFIZER INC-2019313404

PATIENT
  Age: 69 Year
  Sex: Female
  Weight: 108.84 kg

DRUGS (14)
  1. DETROL LA [Suspect]
     Active Substance: TOLTERODINE TARTRATE
     Indication: URINARY INCONTINENCE
     Dosage: 4 MG, 1X/DAY
     Dates: start: 2017
  2. KETOCONAZOLE. [Concomitant]
     Active Substance: KETOCONAZOLE
     Indication: RASH
     Dosage: UNK, AS NEEDED
  3. PLETAL [Concomitant]
     Active Substance: CILOSTAZOL
     Dosage: 100 MG, 2X/DAY
  4. FENOFIBRATE. [Concomitant]
     Active Substance: FENOFIBRATE
     Indication: BLOOD TRIGLYCERIDES INCREASED
     Dosage: 160 MG, 1X/DAY
  5. DEXILANT [Concomitant]
     Active Substance: DEXLANSOPRAZOLE
     Indication: PAIN
  6. VALTREX [Concomitant]
     Active Substance: VALACYCLOVIR HYDROCHLORIDE
     Indication: POST HERPETIC NEURALGIA
     Dosage: 500 MG, 1X/DAY
  7. ZOLOFT [Concomitant]
     Active Substance: SERTRALINE HYDROCHLORIDE
     Indication: ANXIETY
     Dosage: 500 MG, 1X/DAY
  8. LYRICA [Suspect]
     Active Substance: PREGABALIN
     Indication: DIABETIC NEUROPATHY
     Dosage: 100 (UNSPECIFIED UNITS), 1X/DAY
  9. TAGAMET [Concomitant]
     Active Substance: CIMETIDINE
     Indication: GASTROOESOPHAGEAL REFLUX DISEASE
     Dosage: 150 MG, 1X/DAY
  10. DEXILANT [Concomitant]
     Active Substance: DEXLANSOPRAZOLE
     Indication: COLITIS
  11. ZYRTEC [Concomitant]
     Active Substance: CETIRIZINE HYDROCHLORIDE
     Indication: SINUS DISORDER
     Dosage: 10 MG, 1X/DAY
  12. METFORMIN [Concomitant]
     Active Substance: METFORMIN HYDROCHLORIDE
     Indication: DIABETES MELLITUS
     Dosage: 1000 2X/DAY
  13. LISINOPRIL. [Concomitant]
     Active Substance: LISINOPRIL
     Indication: RENAL DISORDER
     Dosage: 5 MG, 1X/DAY
  14. DEXILANT [Concomitant]
     Active Substance: DEXLANSOPRAZOLE
     Indication: PAIN
     Dosage: 120 MG, 1X/DAY (2 AT BED TIME)

REACTIONS (7)
  - Post herpetic neuralgia [Unknown]
  - Body temperature increased [Unknown]
  - Hypotension [Unknown]
  - Dysphagia [Unknown]
  - Pneumonia aspiration [Recovered/Resolved]
  - Herpes zoster [Unknown]
  - Oesophageal dilatation [Unknown]

NARRATIVE: CASE EVENT DATE: 20170210
